FAERS Safety Report 9362974 (Version 1)
Quarter: 2013Q2

REPORT INFORMATION
  Report Type: Spontaneous
  Country: US (occurrence: None)
  Receive Date: 20130621
  Receipt Date: 20130621
  Transmission Date: 20140414
  Serious: No
  Sender: FDA-Public Use
  Company Number: None

PATIENT
  Age: 87 Year
  Sex: Female
  Weight: 56.7 kg

DRUGS (3)
  1. ADVAIR DISKUS [Suspect]
     Indication: ASTHMA
     Dosage: 1 PUFF TWICE DAILY ORAL
     Route: 048
     Dates: start: 20121206
  2. OXYGEN [Concomitant]
  3. ALBUTEROL SULFATE [Concomitant]

REACTIONS (3)
  - Bone pain [None]
  - Pain in extremity [None]
  - Pain in extremity [None]
